FAERS Safety Report 10457473 (Version 2)
Quarter: 2014Q4

REPORT INFORMATION
  Report Type: Spontaneous
  Country: US (occurrence: US)
  Receive Date: 20140916
  Receipt Date: 20141009
  Transmission Date: 20150528
  Serious: Yes (Life-Threatening, Hospitalization, Other)
  Sender: FDA-Public Use
  Company Number: US-B.I. PHARMACEUTICALS,INC./RIDGEFIELD-2014-BI-43382BP

PATIENT
  Age: 57 Year
  Sex: Male
  Weight: 87 kg

DRUGS (2)
  1. PRADAXA [Suspect]
     Active Substance: DABIGATRAN ETEXILATE MESYLATE
     Indication: ATRIAL FIBRILLATION
     Dosage: 150 MG
     Route: 048
     Dates: start: 201301, end: 20131124
  2. DIGOXIN. [Concomitant]
     Active Substance: DIGOXIN
     Indication: ATRIAL FIBRILLATION
     Route: 048

REACTIONS (11)
  - Traumatic haemorrhage [Recovered/Resolved]
  - Splenic rupture [Unknown]
  - Abdominal injury [Recovered/Resolved]
  - Coma [Recovered/Resolved]
  - Road traffic accident [Recovered/Resolved with Sequelae]
  - Wound infection [Recovered/Resolved]
  - Rib fracture [Recovered/Resolved]
  - Shock haemorrhagic [Recovered/Resolved]
  - Haemothorax [Unknown]
  - Respiratory failure [Unknown]
  - Acute kidney injury [Unknown]

NARRATIVE: CASE EVENT DATE: 20131124
